FAERS Safety Report 9476054 (Version 1)
Quarter: 2013Q3

REPORT INFORMATION
  Report Type: Spontaneous
  Country: AU (occurrence: None)
  Receive Date: 20130821
  Receipt Date: 20130821
  Transmission Date: 20140515
  Serious: Yes (Hospitalization)
  Sender: FDA-Public Use
  Company Number: AUR-APL-2013-06865

PATIENT
  Age: 66 Year
  Sex: Female

DRUGS (5)
  1. CEFAZOLIN (CEFAZOLIN) [Suspect]
     Route: 042
     Dates: start: 20120628, end: 20120701
  2. ESOMEPRAZOLE [Suspect]
     Route: 048
     Dates: start: 20120702
  3. FLUCLOXACILLIN (FLUCLOXACILLIN) [Suspect]
     Route: 042
     Dates: start: 20120701, end: 20120704
  4. PARACETAMOL (PARACETAMOL) [Suspect]
  5. VANCOMYCIN (VANCOMYCIN) [Suspect]
     Route: 042
     Dates: start: 20120629, end: 20120702

REACTIONS (1)
  - Tubulointerstitial nephritis [None]
